FAERS Safety Report 7157666-5 (Version None)
Quarter: 2010Q4

REPORT INFORMATION
  Report Type: 
  Country: None (occurrence: None)
  Receive Date: 20101214
  Receipt Date: 20100312
  Transmission Date: 20110411
  Serious: No
  Sender: FDA-Public Use
  Company Number: US-ASTRAZENECA-2010SE10973

PATIENT
  Age: 16160 Day
  Sex: Male
  Weight: 101.2 kg

DRUGS (2)
  1. CRESTOR [Suspect]
     Indication: BLOOD CHOLESTEROL INCREASED
     Route: 048
     Dates: start: 20090901, end: 20100302
  2. ALTACE [Concomitant]
     Indication: HYPERTENSION

REACTIONS (2)
  - GOUT [None]
  - TENDONITIS [None]
